FAERS Safety Report 18009381 (Version 1)
Quarter: 2020Q3

REPORT INFORMATION
  Report Type: Spontaneous
  Country: US (occurrence: US)
  Receive Date: 20200710
  Receipt Date: 20200710
  Transmission Date: 20201103
  Serious: No
  Sender: FDA-Public Use
  Company Number: NVSC2020US193680

PATIENT
  Sex: Female

DRUGS (3)
  1. KISQALI [Suspect]
     Active Substance: RIBOCICLIB
     Indication: OVARIAN CANCER
     Dosage: 600 MG
     Route: 048
     Dates: start: 202006
  2. KISQALI [Suspect]
     Active Substance: RIBOCICLIB
     Indication: MALIGNANT PERITONEAL NEOPLASM
  3. KISQALI [Suspect]
     Active Substance: RIBOCICLIB
     Indication: RETROPERITONEAL CANCER

REACTIONS (7)
  - Hot flush [Not Recovered/Not Resolved]
  - Illness [Not Recovered/Not Resolved]
  - Dehydration [Not Recovered/Not Resolved]
  - Product dose omission issue [Unknown]
  - Fatigue [Not Recovered/Not Resolved]
  - Product use in unapproved indication [Unknown]
  - Abdominal discomfort [Not Recovered/Not Resolved]
